APPROVED DRUG PRODUCT: DIPROLENE
Active Ingredient: BETAMETHASONE DIPROPIONATE
Strength: EQ 0.05% BASE
Dosage Form/Route: CREAM, AUGMENTED;TOPICAL
Application: N019408 | Product #001
Applicant: SCHERING CORP SUB SCHERING PLOUGH CORP
Approved: Jan 31, 1986 | RLD: No | RS: No | Type: DISCN